FAERS Safety Report 25429781 (Version 1)
Quarter: 2025Q2

REPORT INFORMATION
  Report Type: Spontaneous
  Country: CA (occurrence: CA)
  Receive Date: 20250612
  Receipt Date: 20250612
  Transmission Date: 20250717
  Serious: Yes (Death)
  Sender: ASTELLAS
  Company Number: CA-PFIZER INC-202500118752

PATIENT
  Age: 78 Year
  Sex: Female

DRUGS (2)
  1. PADCEV [Suspect]
     Active Substance: ENFORTUMAB VEDOTIN-EJFV
     Indication: Product used for unknown indication
     Route: 065
  2. KEYTRUDA [Suspect]
     Active Substance: PEMBROLIZUMAB
     Indication: Product used for unknown indication
     Route: 065

REACTIONS (13)
  - Abdominal pain upper [Fatal]
  - Acute kidney injury [Fatal]
  - Asthenia [Fatal]
  - Malignant neoplasm progression [Fatal]
  - Dysphagia [Fatal]
  - Haematochezia [Fatal]
  - Hypotension [Fatal]
  - Hypoxia [Fatal]
  - Mobility decreased [Fatal]
  - Oropharyngeal pain [Fatal]
  - Pulmonary oedema [Fatal]
  - Rash pruritic [Fatal]
  - Vomiting [Fatal]
